FAERS Safety Report 9658771 (Version 2)
Quarter: 2013Q4

REPORT INFORMATION
  Report Type: Spontaneous
  Country: US (occurrence: US)
  Receive Date: 20131030
  Receipt Date: 20131030
  Transmission Date: 20140711
  Serious: No
  Sender: FDA-Public Use
  Company Number: US-PURDUE-USA-2010-0058258

PATIENT
  Sex: Male

DRUGS (2)
  1. OXYCONTIN (NDA 22-272) [Suspect]
     Indication: PAIN
     Dosage: 20 MG, TID
     Route: 048
     Dates: start: 20101014
  2. OXYCONTIN (NDA 22-272) [Suspect]
     Dosage: 40 MG, BID
     Route: 048
     Dates: end: 20111014

REACTIONS (2)
  - Therapeutic response unexpected [Unknown]
  - Drug effect decreased [Unknown]
